FAERS Safety Report 10200963 (Version 3)
Quarter: 2014Q2

REPORT INFORMATION
  Report Type: Report from Study
  Country: DE (occurrence: DE)
  Receive Date: 20140528
  Receipt Date: 20140613
  Transmission Date: 20141212
  Serious: Yes (Other)
  Sender: FDA-Public Use
  Company Number: PHHY2014DE064520

PATIENT
  Age: 70 Year
  Sex: Female
  Weight: 73.4 kg

DRUGS (7)
  1. CGS 20267 [Suspect]
     Indication: BREAST CANCER
     Route: 048
     Dates: start: 20131018
  2. PLACEBO [Suspect]
     Indication: BREAST CANCER
     Dates: start: 20131018
  3. THYROXINE [Concomitant]
     Indication: THYROID DISORDER
     Dosage: UNK UKN, UNK
     Dates: start: 2010
  4. THYROXINE [Concomitant]
     Dosage: UNK UKN, UNK
     Dates: start: 2010
  5. TRAMADOL [Concomitant]
     Indication: TUMOUR PAIN
     Dosage: UNK UKN, UNK
     Dates: start: 20130821, end: 20140109
  6. CORTISOL [Concomitant]
     Indication: TUMOUR PAIN
     Dosage: UNK UKN, UNK
     Dates: start: 20130918, end: 20131002
  7. ZOLEDRONATE [Concomitant]
     Indication: METASTASES TO BONE
     Dates: start: 20130925

REACTIONS (2)
  - Interstitial lung disease [Not Recovered/Not Resolved]
  - Dyspnoea [Unknown]
